FAERS Safety Report 25964991 (Version 1)
Quarter: 2025Q4

REPORT INFORMATION
  Report Type: Spontaneous
  Country: US (occurrence: US)
  Receive Date: 20251027
  Receipt Date: 20251027
  Transmission Date: 20260118
  Serious: Yes (Other)
  Sender: OTSUKA
  Company Number: US-MMM-Otsuka-PM031CAN

PATIENT
  Sex: Female
  Weight: 56.7 kg

DRUGS (5)
  1. NUEDEXTA [Suspect]
     Active Substance: DEXTROMETHORPHAN HYDROBROMIDE\QUINIDINE SULFATE
     Indication: Affect lability
     Dosage: 1 DF (20MG-10MG), QD (ONCE DAILY)
     Dates: end: 202509
  2. ZOLOFT [Suspect]
     Active Substance: SERTRALINE HYDROCHLORIDE
     Indication: Product used for unknown indication
     Dosage: UNK
     Route: 065
  3. AUVELITY [Suspect]
     Active Substance: BUPROPION HYDROCHLORIDE\DEXTROMETHORPHAN HYDROBROMIDE
     Indication: Product used for unknown indication
     Route: 065
  4. venlefaxine [Concomitant]
     Indication: Product used for unknown indication
     Dosage: 20 MG
     Route: 065
  5. OMEPRAZOLE [Concomitant]
     Active Substance: OMEPRAZOLE
     Indication: Abdominal discomfort
     Dosage: UNK
     Route: 065

REACTIONS (15)
  - Knee arthroplasty [Unknown]
  - Head injury [Unknown]
  - Joint swelling [Unknown]
  - Headache [Unknown]
  - Balance disorder [Unknown]
  - Memory impairment [Unknown]
  - Abdominal discomfort [Unknown]
  - Insomnia [Unknown]
  - Nausea [Unknown]
  - Dizziness [Unknown]
  - Disease recurrence [Unknown]
  - Depressed mood [Unknown]
  - Expired product administered [Unknown]
  - Therapy interrupted [Unknown]
  - Inability to afford medication [Unknown]

NARRATIVE: CASE EVENT DATE: 20240101
